FAERS Safety Report 21757992 (Version 2)
Quarter: 2023Q1

REPORT INFORMATION
  Report Type: Spontaneous
  Country: DE (occurrence: None)
  Receive Date: 20221221
  Receipt Date: 20230127
  Transmission Date: 20230418
  Serious: Yes (Other)
  Sender: FDA-Public Use
  Company Number: DE-Merck Healthcare KGaA-9372665

PATIENT
  Age: 84 Year
  Sex: Female

DRUGS (3)
  1. GLUCOPHAGE [Suspect]
     Active Substance: METFORMIN HYDROCHLORIDE
     Indication: Product used for unknown indication
  2. GLUCOPHAGE [Suspect]
     Active Substance: METFORMIN HYDROCHLORIDE
  3. XARELTO [Concomitant]
     Active Substance: RIVAROXABAN
     Indication: Product used for unknown indication

REACTIONS (6)
  - Angina pectoris [Recovering/Resolving]
  - Flatulence [Not Recovered/Not Resolved]
  - Dizziness [Recovered/Resolved]
  - Grip strength decreased [Unknown]
  - Product physical issue [Unknown]
  - Wrong technique in product usage process [Unknown]
